FAERS Safety Report 5878589-5 (Version None)
Quarter: 2008Q3

REPORT INFORMATION
  Report Type: 
  Country: None (occurrence: None)
  Receive Date: 20080909
  Receipt Date: 20080827
  Transmission Date: 20090109
  Serious: Yes (Hospitalization, Other)
  Sender: FDA-Public Use
  Company Number: PAR_02309_2008

PATIENT
  Age: 68 Year
  Sex: Female

DRUGS (5)
  1. IBUPROFEN [Suspect]
     Indication: INFLUENZA LIKE ILLNESS
     Dosage: (400 MG 1X ORAL)
     Route: 048
  2. IBUPROFEN [Suspect]
     Indication: CYSTITIS
     Dosage: (600 MG 1X ORAL)
     Route: 048
  3. IBUPROFEN [Suspect]
     Indication: ALLERGY TEST
     Dosage: (50 MG 1X ORAL), (100 MG 1X ORAL)
     Route: 048
  4. IBUPROFEN [Suspect]
     Indication: ALLERGY TEST
     Dosage: (50 MG 1X ORAL), (100 MG 1X ORAL)
     Route: 048
  5. IBUPROFEN [Suspect]
     Indication: ALLERGY TEST
     Dosage: (200 MG 2X 30 MINUTES APART ORAL)
     Route: 048

REACTIONS (12)
  - BODY TEMPERATURE INCREASED [None]
  - CHILLS [None]
  - CYSTITIS [None]
  - HEADACHE [None]
  - HYPOTENSION [None]
  - MALAISE [None]
  - MENINGITIS ASEPTIC [None]
  - NAUSEA [None]
  - REFUSAL OF TREATMENT BY PATIENT [None]
  - SOMNOLENCE [None]
  - VOMITING [None]
  - WHITE BLOOD CELLS URINE POSITIVE [None]
